FAERS Safety Report 11707302 (Version 1)
Quarter: 2015Q4

REPORT INFORMATION
  Report Type: Spontaneous
  Country: US (occurrence: US)
  Receive Date: 20151104
  Receipt Date: 20151104
  Transmission Date: 20160304
  Serious: No
  Sender: FDA-Public Use
  Company Number: US-ELI_LILLY_AND_COMPANY-US201102005404

PATIENT
  Age: 87 Year
  Sex: Female

DRUGS (1)
  1. FORTEO [Suspect]
     Active Substance: TERIPARATIDE
     Dosage: 20 UG, DAILY (1/D)

REACTIONS (13)
  - Dysstasia [Unknown]
  - Back pain [Not Recovered/Not Resolved]
  - Pain [Unknown]
  - Gait disturbance [Unknown]
  - Bone disorder [Unknown]
  - Pain in extremity [Unknown]
  - Urine analysis abnormal [Unknown]
  - Blood urine present [Unknown]
  - Cystitis [Unknown]
  - Pain [Unknown]
  - Movement disorder [Unknown]
  - Hypokinesia [Unknown]
  - Back disorder [Unknown]

NARRATIVE: CASE EVENT DATE: 20110213
